FAERS Safety Report 5647179-1 (Version None)
Quarter: 2008Q1

REPORT INFORMATION
  Report Type: 
  Country: None (occurrence: None)
  Receive Date: 20080228
  Receipt Date: 20080228
  Transmission Date: 20080703
  Serious: No
  Sender: FDA-Public Use
  Company Number: None

PATIENT
  Sex: Male
  Weight: 95.2554 kg

DRUGS (1)
  1. GABAPENTIN [Suspect]
     Indication: NEURALGIA
     Dates: start: 20071216, end: 20080221

REACTIONS (3)
  - AGITATION [None]
  - DEPRESSION [None]
  - SUICIDAL IDEATION [None]
